FAERS Safety Report 21194702 (Version 2)
Quarter: 2023Q1

REPORT INFORMATION
  Report Type: Spontaneous
  Country: FR (occurrence: FR)
  Receive Date: 20220810
  Receipt Date: 20230113
  Transmission Date: 20230417
  Serious: Yes (Hospitalization, Other)
  Sender: FDA-Public Use
  Company Number: None

PATIENT
  Age: 87 Year
  Sex: Female

DRUGS (4)
  1. PANTOPRAZOLE [Suspect]
     Active Substance: PANTOPRAZOLE
     Indication: Peptic ulcer
     Dosage: 40 MG, 1X/DAY (40 MILLIGRAM, QD)
     Route: 065
  2. RAMIPRIL [Suspect]
     Active Substance: RAMIPRIL
     Indication: Hypertension
     Dosage: 5 MG, 1X/DAY (5 MILLIGRAM, QD)
     Route: 065
     Dates: end: 20220712
  3. LOXAPINE [Suspect]
     Active Substance: LOXAPINE
     Indication: Peptic ulcer
     Dosage: 6 ML, 1X/DAY (6 MILLILITER, QD)
     Route: 065
     Dates: end: 20220712
  4. ESCITALOPRAM [Suspect]
     Active Substance: ESCITALOPRAM OXALATE
     Indication: Depression
     Dosage: 5 MG, 1X/DAY (5 MILLIGRAM, QD)
     Route: 065
     Dates: end: 20220712

REACTIONS (2)
  - Inappropriate antidiuretic hormone secretion [Recovered/Resolved]
  - Hyponatraemia [Recovered/Resolved]

NARRATIVE: CASE EVENT DATE: 20210101
